FAERS Safety Report 12466846 (Version 1)
Quarter: 2016Q2

REPORT INFORMATION
  Report Type: Spontaneous
  Country: US (occurrence: None)
  Receive Date: 20160614
  Receipt Date: 20160614
  Transmission Date: 20160815
  Serious: Yes (Disabling)
  Sender: FDA-Public Use
  Company Number: None

PATIENT
  Age: 59 Year
  Sex: Male
  Weight: 72.58 kg

DRUGS (3)
  1. FIBER ONE [Concomitant]
  2. PENTASA [Suspect]
     Active Substance: MESALAMINE
     Indication: CROHN^S DISEASE
     Route: 048
     Dates: start: 20160201
  3. PENTASA [Suspect]
     Active Substance: MESALAMINE
     Indication: COLITIS ULCERATIVE
     Route: 048
     Dates: start: 20160201

REACTIONS (9)
  - Hypoaesthesia [None]
  - Coagulopathy [None]
  - Platelet disorder [None]
  - Drug ineffective [None]
  - Frustration tolerance decreased [None]
  - Erectile dysfunction [None]
  - Skin discolouration [None]
  - Feeling hot [None]
  - Skin disorder [None]

NARRATIVE: CASE EVENT DATE: 20160306
